FAERS Safety Report 8769002 (Version 2)
Quarter: 2012Q4

REPORT INFORMATION
  Report Type: 
  Country: JP (occurrence: JP)
  Receive Date: 20120904
  Receipt Date: 20121206
  Transmission Date: 20130627
  Serious: Yes (Hospitalization, Other)
  Sender: FDA-Public Use
  Company Number: JP-009507513-2012SP014393

PATIENT
  Age: 62 Year
  Sex: Male
  Weight: 70 kg

DRUGS (18)
  1. PEGINTRON [Suspect]
     Indication: CHRONIC HEPATITIS C
     Dosage: 100 Microgram, qw
     Route: 058
     Dates: start: 20120207
  2. PEGINTRON [Suspect]
     Dosage: 1.61 Microgram per kilogram, qw
     Route: 058
     Dates: end: 20120515
  3. REBETOL [Suspect]
     Indication: CHRONIC HEPATITIS C
     Dosage: 800 mg, qd
     Route: 048
     Dates: start: 20120207, end: 20120313
  4. REBETOL [Suspect]
     Dosage: 600 mg, qd
     Route: 048
     Dates: start: 20120314, end: 20120424
  5. REBETOL [Suspect]
     Dosage: 200 mg, qd
     Route: 048
     Dates: start: 20120425, end: 20120517
  6. TELAVIC [Suspect]
     Indication: CHRONIC HEPATITIS C
     Dosage: 2250 mg, qd
     Route: 048
     Dates: start: 20120207, end: 20120305
  7. TELAVIC [Suspect]
     Dosage: 1000 mg, qd
     Route: 048
     Dates: start: 20120306, end: 20120424
  8. TELAVIC [Suspect]
     Dosage: 500 mg, qd
     Route: 048
     Dates: start: 20120425, end: 20120501
  9. TALION (BEPOTASTINE BESYLATE) [Concomitant]
     Indication: PROPHYLAXIS
     Dosage: 20 mg, qd
     Route: 048
     Dates: start: 20120207
  10. TALION (BEPOTASTINE BESYLATE) [Concomitant]
     Dosage: 20 mg, qd
     Route: 048
     Dates: end: 20120522
  11. TAKEPRON [Concomitant]
     Indication: PROPHYLAXIS
     Dosage: 15 mg, prn
     Route: 048
  12. BUSCOPAN [Concomitant]
     Indication: PROPHYLAXIS
     Dosage: 20 mg, prn
     Route: 048
  13. PREDONINE [Concomitant]
     Dosage: UNK
     Route: 048
  14. REBAMIPIDE [Concomitant]
     Indication: PROPHYLAXIS
     Dosage: UNK UNK, Unknown
     Route: 048
  15. REBAMIPIDE [Concomitant]
     Dosage: 300 mg, qd
     Route: 048
     Dates: start: 20120414, end: 20120617
  16. CEFDINIR [Concomitant]
     Indication: PROPHYLAXIS
     Dosage: UNK UNK, Unknown
     Route: 048
  17. CEFDINIR [Concomitant]
     Dosage: 300 mg, qd
     Route: 048
     Dates: start: 20120426, end: 20120509
  18. ALESION [Concomitant]
     Dosage: UNK UNK, Unknown
     Route: 048

REACTIONS (2)
  - Renal disorder [Recovered/Resolved]
  - Anaemia [Recovered/Resolved]
